FAERS Safety Report 8578733-5 (Version None)
Quarter: 2012Q3

REPORT INFORMATION
  Report Type: 
  Country: None (occurrence: None)
  Receive Date: 20120801
  Receipt Date: 20120801
  Transmission Date: 20120928
  Serious: Yes (Life-Threatening, Hospitalization, Disabling)
  Sender: FDA-Public Use
  Company Number: None

PATIENT
  Sex: Female
  Weight: 63.5036 kg

DRUGS (1)
  1. TRIAD ALCOHOL PREP PAD [Suspect]
     Indication: INFECTION PROPHYLAXIS
     Dosage: 1 PAD DAILY
     Dates: start: 20080101, end: 20110101

REACTIONS (1)
  - PRODUCT CONTAMINATION MICROBIAL [None]
